FAERS Safety Report 20587409 (Version 3)
Quarter: 2025Q2

REPORT INFORMATION
  Report Type: Spontaneous
  Country: US (occurrence: US)
  Receive Date: 20220314
  Receipt Date: 20250602
  Transmission Date: 20250717
  Serious: Yes (Other)
  Sender: AUROBINDO
  Company Number: US-MLMSERVICE-20220224-3397395-1

PATIENT
  Age: 42 Year
  Sex: Male

DRUGS (1)
  1. BUPIVACAINE HYDROCHLORIDE [Suspect]
     Active Substance: BUPIVACAINE HYDROCHLORIDE
     Indication: Anaesthesia
     Route: 065

REACTIONS (4)
  - Haemolysis [Recovering/Resolving]
  - Methaemoglobinaemia [Recovering/Resolving]
  - Normocytic anaemia [Recovering/Resolving]
  - Spherocytic anaemia [Recovering/Resolving]
